FAERS Safety Report 4795414-4 (Version None)
Quarter: 2005Q3

REPORT INFORMATION
  Report Type: 
  Country: None (occurrence: None)
  Receive Date: 20050929
  Receipt Date: 20050729
  Transmission Date: 20060218
  Serious: No
  Sender: FDA-Public Use
  Company Number: 05P-163-0307090-00

PATIENT
  Age: 62 Year
  Sex: Female
  Weight: 43.0917 kg

DRUGS (11)
  1. HUMIRA [Suspect]
     Indication: RHEUMATOID ARTHRITIS
     Dosage: 40 MG, 1 IN 2 WK, SUBCUTANEOUS; SEE IMAGE
     Route: 058
     Dates: start: 20030801, end: 20050601
  2. HUMIRA [Suspect]
     Indication: RHEUMATOID ARTHRITIS
     Dosage: 40 MG, 1 IN 2 WK, SUBCUTANEOUS; SEE IMAGE
     Route: 058
     Dates: start: 20050701, end: 20050720
  3. LEFLUNOMIDE [Concomitant]
  4. CELECOXIB [Concomitant]
  5. ATENLOL [Concomitant]
  6. GABAPENTIN [Concomitant]
  7. AMITRIPTYLINE HCL [Concomitant]
  8. CALCIUM GLUCONATE [Concomitant]
  9. MULTI-VITAMINS [Concomitant]
  10. IRON [Concomitant]
  11. PANTOPRAZOLE [Concomitant]

REACTIONS (2)
  - POSTOPERATIVE WOUND INFECTION [None]
  - RASH [None]
